FAERS Safety Report 5027870-0 (Version None)
Quarter: 2006Q2

REPORT INFORMATION
  Report Type: 
  Country: None (occurrence: None)
  Receive Date: 20060616
  Receipt Date: 20060607
  Transmission Date: 20061013
  Serious: Yes (Hospitalization)
  Sender: FDA-Public Use
  Company Number: US-ROCHE-451075

PATIENT
  Age: 73 Year
  Sex: Female
  Weight: 48.6 kg

DRUGS (2)
  1. CAPECITABINE [Suspect]
     Indication: RECTAL CANCER
     Dosage: ROUTE, DOSE AND FREQUENCY AS PER PROTOCOL - ORALLY DAILY FOR SEVEN DAYS
     Route: 048
     Dates: start: 20060418, end: 20060502
  2. IRINOTECAN [Suspect]
     Indication: RECTAL CANCER
     Dosage: 50 MG/ M2 IV OVER 1 HOUR ON DAYS 1, 8, 15, 22.
     Route: 042
     Dates: start: 20060418, end: 20060425

REACTIONS (4)
  - DEHYDRATION [None]
  - ENTERITIS [None]
  - ILEUS [None]
  - NAUSEA [None]
